FAERS Safety Report 25010354 (Version 1)
Quarter: 2025Q1

REPORT INFORMATION
  Report Type: Spontaneous
  Country: KR (occurrence: KR)
  Receive Date: 20250225
  Receipt Date: 20250225
  Transmission Date: 20250409
  Serious: Yes (Other)
  Sender: PURDUE
  Company Number: KR-MLMSERVICE-20250219-PI407080-00252-3

PATIENT
  Age: 24 Year
  Sex: Female

DRUGS (11)
  1. OXYCODONE HYDROCHLORIDE [Suspect]
     Active Substance: OXYCODONE HYDROCHLORIDE
     Indication: Neuralgia
     Route: 065
     Dates: start: 201910, end: 202002
  2. OXYCODONE HYDROCHLORIDE [Suspect]
     Active Substance: OXYCODONE HYDROCHLORIDE
     Indication: Complex regional pain syndrome
     Dosage: 15 MG PER DAY (5 MILLIGRAM, Q8H)
     Route: 065
     Dates: start: 202002, end: 202008
  3. OXYCODONE HYDROCHLORIDE [Suspect]
     Active Substance: OXYCODONE HYDROCHLORIDE
     Dosage: 25 MILLIGRAM, DAILY
     Route: 065
     Dates: start: 202008, end: 202010
  4. OXYCODONE HYDROCHLORIDE [Suspect]
     Active Substance: OXYCODONE HYDROCHLORIDE
     Dosage: 15 MILLIGRAM, DAILY
     Route: 065
     Dates: start: 202010, end: 202102
  5. OXYCODONE HYDROCHLORIDE [Suspect]
     Active Substance: OXYCODONE HYDROCHLORIDE
     Dosage: 20 MILLIGRAM, DAILY
     Route: 065
     Dates: start: 202102, end: 202104
  6. OXYCODONE HYDROCHLORIDE [Suspect]
     Active Substance: OXYCODONE HYDROCHLORIDE
     Dosage: 25 MILLIGRAM, DAILY
     Route: 065
     Dates: start: 202104
  7. CYMBALTA [Suspect]
     Active Substance: DULOXETINE HYDROCHLORIDE
     Indication: Neuralgia
     Dosage: 60 MG PER DAY (30 MILLIGRAM, Q12H)
     Route: 065
     Dates: start: 201905, end: 202008
  8. CYMBALTA [Suspect]
     Active Substance: DULOXETINE HYDROCHLORIDE
     Indication: Complex regional pain syndrome
     Dosage: 60 MILLIGRAM, Q12H
     Route: 065
     Dates: start: 202008, end: 202104
  9. NUCYNTA ER [Suspect]
     Active Substance: TAPENTADOL HYDROCHLORIDE
     Indication: Neuralgia
     Dosage: 100 MG PER DAY (50 MILLIGRAM, Q12H)
     Route: 065
     Dates: start: 201908, end: 202002
  10. NUCYNTA ER [Suspect]
     Active Substance: TAPENTADOL HYDROCHLORIDE
     Indication: Complex regional pain syndrome
     Dosage: 200 MILLIGRAM, DAILY
     Route: 065
     Dates: start: 202002, end: 202008
  11. NUCYNTA ER [Suspect]
     Active Substance: TAPENTADOL HYDROCHLORIDE
     Dosage: 300 MG PER DAY (150 MILLIGRAM, Q12H)
     Route: 065
     Dates: start: 202008, end: 202010

REACTIONS (1)
  - Serotonin syndrome [Recovered/Resolved]

NARRATIVE: CASE EVENT DATE: 20200101
